FAERS Safety Report 14559778 (Version 2)
Quarter: 2018Q1

REPORT INFORMATION
  Report Type: Report from Study
  Country: None (occurrence: US)
  Receive Date: 20180221
  Receipt Date: 20180320
  Transmission Date: 20180509
  Serious: Yes (Hospitalization)
  Sender: FDA-Public Use
  Company Number: US-VIFOR (INTERNATIONAL) INC.-VIT-2018-01863

PATIENT
  Age: 84 Year
  Sex: Male
  Weight: 122.58 kg

DRUGS (22)
  1. OXYBUTYNIN. [Concomitant]
     Active Substance: OXYBUTYNIN CHLORIDE
     Dates: start: 20170523, end: 20171119
  2. ANORO ELLIPT AER [Concomitant]
     Dosage: 62.5-25
     Dates: start: 20171106, end: 20180105
  3. OXYBUTYNIN. [Concomitant]
     Active Substance: OXYBUTYNIN CHLORIDE
     Dates: start: 20170820, end: 20180216
  4. ANORO ELLIPT AER [Concomitant]
     Dosage: 62.5-25
     Dates: start: 20170508, end: 20171203
  5. OXYBUTYNIN. [Concomitant]
     Active Substance: OXYBUTYNIN CHLORIDE
     Dates: start: 20171118, end: 20180117
  6. MEMANTINE HYDROCHLORIDE. [Concomitant]
     Active Substance: MEMANTINE HYDROCHLORIDE
     Dates: start: 20170905
  7. INSULIN [Concomitant]
     Active Substance: INSULIN NOS
     Dosage: 0.5/29G
     Dates: start: 20170306
  8. DONEPEZIL. [Concomitant]
     Active Substance: DONEPEZIL
     Dates: start: 20170516, end: 20180104
  9. WARFARIN [Concomitant]
     Active Substance: WARFARIN
     Dates: start: 20170402
  10. PANTOPRAZOLE [Concomitant]
     Active Substance: PANTOPRAZOLE
     Dates: start: 20180118
  11. SERTRALINE [Concomitant]
     Active Substance: SERTRALINE HYDROCHLORIDE
     Dates: start: 20170714
  12. BICALUTAMIDE. [Concomitant]
     Active Substance: BICALUTAMIDE
     Dates: start: 20170714, end: 20180211
  13. VELTASSA [Suspect]
     Active Substance: PATIROMER
     Indication: HYPERKALAEMIA
     Route: 048
     Dates: start: 20170114
  14. RISPERIDONE. [Concomitant]
     Active Substance: RISPERIDONE
     Dates: start: 20170905
  15. MEMANTINE HYDROCHLORIDE. [Concomitant]
     Active Substance: MEMANTINE HYDROCHLORIDE
     Dates: start: 20170327, end: 20171220
  16. WARFARIN [Concomitant]
     Active Substance: WARFARIN
     Dates: start: 20170217
  17. TAMSULOSIN [Concomitant]
     Active Substance: TAMSULOSIN
     Dates: start: 20170907
  18. ALLOPURINOL. [Concomitant]
     Active Substance: ALLOPURINOL
     Dates: start: 20170711
  19. AMLODIPINE [Concomitant]
     Active Substance: AMLODIPINE BESYLATE
     Dates: start: 20170923
  20. SODIUM BICARBONATE. [Concomitant]
     Active Substance: SODIUM BICARBONATE
     Dates: start: 20170814, end: 20180118
  21. LEVETIRACETAM. [Concomitant]
     Active Substance: LEVETIRACETAM
     Dates: start: 20171118, end: 20180117
  22. AMMONIUM LACTATE. [Concomitant]
     Active Substance: AMMONIUM LACTATE
     Dates: start: 20171114, end: 20180111

REACTIONS (2)
  - Hydrocephalus [Not Recovered/Not Resolved]
  - Cerebral haemorrhage [Not Recovered/Not Resolved]

NARRATIVE: CASE EVENT DATE: 201712
